FAERS Safety Report 8021236-7 (Version None)
Quarter: 2011Q4

REPORT INFORMATION
  Report Type: 
  Country: None (occurrence: None)
  Receive Date: 20111229
  Receipt Date: 20110510
  Transmission Date: 20120403
  Serious: No
  Sender: FDA-Public Use
  Company Number: 003-048

PATIENT
  Age: 29 Year
  Sex: Male
  Weight: 105 kg

DRUGS (1)
  1. CROFAB [Suspect]
     Indication: SNAKE BITE
     Dosage: 2 VIALS EVERY 6 HRS
     Dates: start: 20110508

REACTIONS (4)
  - TREATMENT NONCOMPLIANCE [None]
  - GENERAL PHYSICAL HEALTH DETERIORATION [None]
  - PAIN [None]
  - WOUND SECRETION [None]
